FAERS Safety Report 8877720 (Version 2)
Quarter: 2012Q4

REPORT INFORMATION
  Report Type: 
  Country: JP (occurrence: JP)
  Receive Date: 20121024
  Receipt Date: 20121224
  Transmission Date: 20130627
  Serious: Yes (Disabling)
  Sender: FDA-Public Use
  Company Number: JP-ASTELLAS-2012JP009551

PATIENT
  Age: 36 Year
  Sex: Female
  Weight: 45.3 kg

DRUGS (22)
  1. PROGRAF [Suspect]
     Indication: COLITIS ULCERATIVE
     Dosage: 8 mg, Unknown/D
     Route: 048
     Dates: start: 20120704, end: 2012
  2. PROGRAF [Suspect]
     Dosage: 3 mg, Unknown/D
     Route: 048
     Dates: start: 2012, end: 20121001
  3. PROGRAF [Suspect]
     Dosage: 3.5 mg, bid
     Route: 048
     Dates: start: 20121002
  4. IMURAN                             /00001501/ [Suspect]
     Indication: COLITIS ULCERATIVE
     Dosage: 50 mg, UID/QD
     Route: 048
     Dates: start: 20120810, end: 20120814
  5. XYZAL [Concomitant]
     Indication: COLITIS ULCERATIVE
     Dosage: 5 mg, UID/QD
     Route: 048
     Dates: start: 20120812
  6. BIOFERMIN                          /01617201/ [Concomitant]
     Indication: COLITIS ULCERATIVE
     Dosage: 1 g, tid
     Route: 048
     Dates: start: 20120818
  7. HALCION [Concomitant]
     Indication: COLITIS ULCERATIVE
     Dosage: 0.25 mg, UID/QD
     Route: 048
     Dates: start: 20120818
  8. PENTASA [Concomitant]
     Indication: COLITIS ULCERATIVE
     Dosage: 2000 mg, bid
     Route: 048
  9. PARIET [Concomitant]
     Indication: COLITIS ULCERATIVE
     Dosage: 10 mg, UID/QD
     Route: 048
     Dates: start: 20120704
  10. BAKTAR [Concomitant]
     Indication: COLITIS ULCERATIVE
     Dosage: 1 DF, UID/QD
     Route: 048
     Dates: start: 20120725
  11. FERROMIA                           /00023520/ [Concomitant]
     Indication: COLITIS ULCERATIVE
     Dosage: 100 mg, bid
     Route: 048
     Dates: start: 20120919
  12. LEUKERIN [Concomitant]
     Indication: COLITIS ULCERATIVE
     Dosage: 30 mg, UID/QD
     Route: 048
     Dates: start: 20120919
  13. PREDNISOLONE [Concomitant]
     Indication: COLITIS ULCERATIVE
     Dosage: 20 mg, Unknown/D
     Route: 048
     Dates: start: 200902
  14. PREDNISOLONE [Concomitant]
     Indication: ARTHROPATHY
     Route: 048
  15. PREDNISOLONE [Concomitant]
     Dosage: 40 mg, Unknown/D
     Route: 048
  16. CIPROFLOXACIN HYDROCHLORIDE [Concomitant]
     Indication: COLITIS ULCERATIVE
     Dosage: 150 mg, Q12 hours
     Route: 065
  17. CALONAL [Concomitant]
     Route: 065
  18. BRUFEN                             /00109201/ [Concomitant]
     Dosage: UNK
     Route: 048
  19. MYSER                              /01249201/ [Concomitant]
     Dosage: UNK
     Route: 061
     Dates: start: 20120814
  20. ANTEBATE [Concomitant]
     Dosage: UNK
     Route: 061
     Dates: start: 20120815
  21. LOCOID [Concomitant]
     Dosage: UNK
     Route: 061
     Dates: start: 20120815
  22. ANTEBATE [Concomitant]
     Dosage: UNK
     Route: 061
     Dates: start: 20120815

REACTIONS (3)
  - Intentional drug misuse [Unknown]
  - Hyperkeratosis [Not Recovered/Not Resolved]
  - Drug eruption [Recovered/Resolved]
